FAERS Safety Report 19433813 (Version 1)
Quarter: 2021Q2

REPORT INFORMATION
  Report Type: Spontaneous
  Country: US (occurrence: US)
  Receive Date: 20210618
  Receipt Date: 20210618
  Transmission Date: 20210717
  Serious: No
  Sender: FDA-Public Use
  Company Number: US-SA-2021SA201900

PATIENT
  Age: 77 Year
  Sex: Female

DRUGS (2)
  1. DUPIXENT [Suspect]
     Active Substance: DUPILUMAB
     Indication: PRURITUS
     Dosage: LOADING DOSE
     Dates: start: 20210602, end: 20210602
  2. DUPIXENT [Suspect]
     Active Substance: DUPILUMAB
     Indication: TEMPERATURE INTOLERANCE
     Dosage: UNK UNK, QOW
     Dates: start: 20210616

REACTIONS (7)
  - Nasopharyngitis [Not Recovered/Not Resolved]
  - Cancer surgery [Not Recovered/Not Resolved]
  - Skin infection [Not Recovered/Not Resolved]
  - Pyrexia [Not Recovered/Not Resolved]
  - Impaired healing [Not Recovered/Not Resolved]
  - Sinus disorder [Not Recovered/Not Resolved]
  - Product use in unapproved indication [Unknown]

NARRATIVE: CASE EVENT DATE: 2021
